FAERS Safety Report 4370414-7 (Version None)
Quarter: 2004Q2

REPORT INFORMATION
  Report Type: 
  Country: None (occurrence: None)
  Receive Date: 20040603
  Receipt Date: 20040205
  Transmission Date: 20050107
  Serious: No
  Sender: FDA-Public Use
  Company Number: US-BRISTOL-MYERS SQUIBB COMPANY-12497327

PATIENT
  Sex: Male

DRUGS (2)
  1. ABILIFY [Suspect]
  2. ZYPREXA [Concomitant]

REACTIONS (2)
  - FAECAL INCONTINENCE [None]
  - URINARY INCONTINENCE [None]
